FAERS Safety Report 17984090 (Version 1)
Quarter: 2020Q3

REPORT INFORMATION
  Report Type: Spontaneous
  Country: US (occurrence: US)
  Receive Date: 20200706
  Receipt Date: 20200706
  Transmission Date: 20201103
  Serious: No
  Sender: FDA-Public Use
  Company Number: None

PATIENT
  Age: 40 Year
  Sex: Female
  Weight: 140 kg

DRUGS (11)
  1. BUDESONIDE 0.5 MG NEBULIZER [Concomitant]
     Dates: start: 20200630
  2. LPRATROPIUM?ALBUTEROL NEBULIZER [Concomitant]
  3. CISATRACURIUM. [Concomitant]
     Active Substance: CISATRACURIUM
     Dates: start: 20200630
  4. MIDAZOLAM. [Concomitant]
     Active Substance: MIDAZOLAM
     Dates: start: 20200630
  5. REMDESIVIR. [Suspect]
     Active Substance: REMDESIVIR
     Indication: COVID-19
     Route: 041
     Dates: start: 20200701, end: 20200702
  6. KETAMINE [Concomitant]
     Active Substance: KETAMINE
  7. FENTANYL. [Concomitant]
     Active Substance: FENTANYL
     Dates: start: 20200630
  8. NOREPINEPHRINE. [Concomitant]
     Active Substance: NOREPINEPHRINE
     Dates: start: 20200630
  9. CABOXYMETHYLCELLULOSE OPHTHALMIC DROPS [Concomitant]
     Dates: start: 20200630
  10. INSULIN ASPART + DETEMIR [Concomitant]
     Dates: start: 20200630
  11. PROPOFOL. [Concomitant]
     Active Substance: PROPOFOL
     Dates: start: 20200630

REACTIONS (2)
  - SARS-CoV-1 test positive [None]
  - Blood creatinine increased [None]

NARRATIVE: CASE EVENT DATE: 20200703
